FAERS Safety Report 5324085-3 (Version None)
Quarter: 2007Q2

REPORT INFORMATION
  Report Type: 
  Country: None (occurrence: None)
  Receive Date: 20070507
  Receipt Date: 20070425
  Transmission Date: 20071010
  Serious: Yes (Life-Threatening, Hospitalization)
  Sender: FDA-Public Use
  Company Number: GXKR2007GB03819

PATIENT
  Age: 76 Year
  Sex: Male

DRUGS (13)
  1. CLARITHROMYCIN [Suspect]
     Indication: CHRONIC OBSTRUCTIVE PULMONARY DISEASE
     Dosage: 500 MG, BID, ORAL
     Route: 048
     Dates: start: 20070322, end: 20070326
  2. OXYTETRACYCLINE DIHYDRATE9OXYTETRACYCLINE DIHYDRATE) [Suspect]
     Indication: CHRONIC OBSTRUCTIVE PULMONARY DISEASE
     Dosage: 50 MG, INTRAVENOUS
     Route: 042
     Dates: start: 20070317, end: 20070327
  3. THEOPHYLLINE [Suspect]
     Indication: CHRONIC OBSTRUCTIVE PULMONARY DISEASE
     Dosage: 300 MG, BID, ORAL
     Route: 048
     Dates: start: 20070309, end: 20070327
  4. ADCAL (CARBAZOCHROME) [Concomitant]
  5. BENDROFLUMETHIAZIDE (BENDROFLUMETHIAZIDE) [Concomitant]
  6. CITALOPRAM HYDROBROMIDE [Concomitant]
  7. FINASTERIDE [Concomitant]
  8. IRBESARTAN [Concomitant]
  9. ISOSORBIDE DINITRATE [Concomitant]
  10. MONTELUKAST (MONTELUKAST) [Concomitant]
  11. OMEPRAZOLE [Concomitant]
  12. PRAVASTATIN [Concomitant]
  13. RISEDRONATE SODIUM [Concomitant]

REACTIONS (5)
  - ARRHYTHMIA [None]
  - C-REACTIVE PROTEIN INCREASED [None]
  - DRUG LEVEL INCREASED [None]
  - GLOMERULAR FILTRATION RATE DECREASED [None]
  - LABELLED DRUG-DRUG INTERACTION MEDICATION ERROR [None]
